FAERS Safety Report 5949396-X (Version None)
Quarter: 2008Q4

REPORT INFORMATION
  Report Type: 
  Country: None (occurrence: None)
  Receive Date: 20081112
  Receipt Date: 20081030
  Transmission Date: 20090506
  Serious: Yes (Other)
  Sender: FDA-Public Use
  Company Number: PHHY2008IT26951

PATIENT

DRUGS (1)
  1. SEBIVO [Suspect]

REACTIONS (10)
  - AGEUSIA [None]
  - ANOREXIA [None]
  - COUGH [None]
  - DYSGEUSIA [None]
  - DYSPHAGIA [None]
  - GLOSSITIS [None]
  - GLOSSODYNIA [None]
  - PARAESTHESIA [None]
  - PARAESTHESIA ORAL [None]
  - SENSORY DISTURBANCE [None]
